FAERS Safety Report 22275451 (Version 1)
Quarter: 2023Q2

REPORT INFORMATION
  Report Type: Spontaneous
  Country: US (occurrence: US)
  Receive Date: 20230502
  Receipt Date: 20230502
  Transmission Date: 20230721
  Serious: Yes (Hospitalization)
  Sender: FDA-Public Use
  Company Number: US-MYLANLABS-2023M1045973

PATIENT
  Age: 78 Year
  Sex: Male

DRUGS (4)
  1. SULFAMETHOXAZOLE\TRIMETHOPRIM [Interacting]
     Active Substance: SULFAMETHOXAZOLE\TRIMETHOPRIM
     Indication: Lymphangitis
     Dosage: RECEIVED 800MG/160MG
     Route: 065
  2. WARFARIN [Interacting]
     Active Substance: WARFARIN
     Indication: Deep vein thrombosis
     Dosage: UNK
     Route: 065
  3. CEFTRIAXONE [Suspect]
     Active Substance: CEFTRIAXONE
     Indication: Lymphangitis
     Dosage: 1 GRAM
     Route: 030
  4. CEFADROXIL [Suspect]
     Active Substance: CEFADROXIL
     Indication: Lymphangitis
     Dosage: UNK
     Route: 065

REACTIONS (4)
  - Nephropathy [Recovered/Resolved]
  - Nephritis [Recovered/Resolved]
  - Labelled drug-drug interaction medication error [Recovered/Resolved]
  - International normalised ratio increased [Recovered/Resolved]
